FAERS Safety Report 4350161-8 (Version None)
Quarter: 2004Q2

REPORT INFORMATION
  Report Type: 
  Country: None (occurrence: None)
  Receive Date: 20040429
  Receipt Date: 20040423
  Transmission Date: 20050107
  Serious: Yes (Other)
  Sender: FDA-Public Use
  Company Number: US-BRISTOL-MYERS SQUIBB COMPANY-12572863

PATIENT

DRUGS (5)
  1. CYCLOPHOSPHAMIDE [Suspect]
     Indication: NON-HODGKIN'S LYMPHOMA
     Dosage: DAYS 1 + 8
     Route: 042
  2. ETOPOSIDE [Suspect]
     Indication: NON-HODGKIN'S LYMPHOMA
     Dosage: DAYS 1, 2, 3
     Route: 042
  3. PROCARBAZINE [Suspect]
     Indication: NON-HODGKIN'S LYMPHOMA
     Dosage: DAYS 1-10
     Route: 042
  4. PREDNISONE [Suspect]
     Indication: NON-HODGKIN'S LYMPHOMA
     Dosage: DAYS 1-10
     Route: 042
  5. BLEOMYCIN [Suspect]
     Indication: NON-HODGKIN'S LYMPHOMA
     Dosage: 15 U/M2 ON DAYS 1 AND 15

REACTIONS (1)
  - CYSTITIS HAEMORRHAGIC [None]
